FAERS Safety Report 7001241-X (Version None)
Quarter: 2010Q3

REPORT INFORMATION
  Report Type: 
  Country: None (occurrence: None)
  Receive Date: 20100920
  Receipt Date: 20071206
  Transmission Date: 20110219
  Serious: No
  Sender: FDA-Public Use
  Company Number: US-ASTRAZENECA-2007UW09280

PATIENT
  Age: 17198 Day
  Sex: Female
  Weight: 101.2 kg

DRUGS (10)
  1. SEROQUEL [Suspect]
     Indication: DEPRESSION
     Route: 048
     Dates: start: 20030101, end: 20061001
  2. SEROQUEL [Suspect]
     Route: 048
     Dates: start: 20040128, end: 20050815
  3. ABILIFY [Concomitant]
     Dates: start: 20040101
  4. RISPERDAL [Concomitant]
  5. PROZAC [Concomitant]
     Dates: start: 20000822
  6. DETROL [Concomitant]
     Dates: start: 20031110
  7. ATIVAN [Concomitant]
     Dates: start: 20031110
  8. NEURONTIN [Concomitant]
  9. TYLOX [Concomitant]
     Dates: start: 20040802
  10. PRIMIDONE [Concomitant]
     Dosage: 100 - 250 MG
     Dates: start: 20040127

REACTIONS (5)
  - ABDOMINAL DISCOMFORT [None]
  - FALL [None]
  - OBESITY [None]
  - TYPE 2 DIABETES MELLITUS [None]
  - WEIGHT INCREASED [None]
